FAERS Safety Report 7503758-8 (Version None)
Quarter: 2011Q2

REPORT INFORMATION
  Report Type: 
  Country: None (occurrence: None)
  Receive Date: 20110518
  Receipt Date: 20110505
  Transmission Date: 20111010
  Serious: Yes (Hospitalization, Disabling)
  Sender: FDA-Public Use
  Company Number: 2011MA005730

PATIENT
  Age: 6 Month
  Sex: Female

DRUGS (2)
  1. GAVISCON INFANT [Concomitant]
  2. RANITIDINE [Suspect]
     Indication: PRODUCT USED FOR UNKNOWN INDICATION
     Dosage: 5 ML, X1, PO
     Route: 048

REACTIONS (3)
  - DRUG HYPERSENSITIVITY [None]
  - PALLOR [None]
  - REGURGITATION [None]
